FAERS Safety Report 5399255-9 (Version None)
Quarter: 2007Q3

REPORT INFORMATION
  Report Type: 
  Country: None (occurrence: None)
  Receive Date: 20070727
  Receipt Date: 20070719
  Transmission Date: 20080115
  Serious: Yes (Other)
  Sender: FDA-Public Use
  Company Number: B0463976A

PATIENT
  Age: 40 Year
  Sex: Female
  Weight: 51 kg

DRUGS (4)
  1. SERETIDE DISKUS [Suspect]
     Indication: ASTHMA
     Dosage: 1PUFF TWICE PER DAY
     Route: 055
     Dates: start: 20061205, end: 20070307
  2. NORVIR [Suspect]
     Indication: HIV INFECTION
  3. TELZIR [Concomitant]
     Indication: HIV INFECTION
  4. TRUVADA [Concomitant]
     Indication: HIV INFECTION

REACTIONS (5)
  - BLOOD CORTISOL DECREASED [None]
  - CUSHING'S SYNDROME [None]
  - DRUG INTERACTION [None]
  - SKIN STRIAE [None]
  - WEIGHT INCREASED [None]
